FAERS Safety Report 19946552 (Version 4)
Quarter: 2022Q1

REPORT INFORMATION
  Report Type: Spontaneous
  Country: ES (occurrence: ES)
  Receive Date: 20211012
  Receipt Date: 20220107
  Transmission Date: 20220423
  Serious: Yes (Hospitalization)
  Sender: FDA-Public Use
  Company Number: None

PATIENT
  Age: 86 Year
  Sex: Female

DRUGS (4)
  1. FUROSEMIDE [Interacting]
     Active Substance: FUROSEMIDE
     Indication: Cardiac failure
     Dosage: 40 MILLIGRAM, QD, 40MG/24H
     Route: 048
     Dates: start: 20160404
  2. CHLORTHALIDONE [Interacting]
     Active Substance: CHLORTHALIDONE
     Indication: Cardiac failure
     Dosage: 50 MILLIGRAM, QD, 50MG/24H, 30 TABLETS
     Route: 048
     Dates: start: 20190312
  3. SPIRONOLACTONE [Interacting]
     Active Substance: SPIRONOLACTONE
     Indication: Cardiac failure
     Dosage: 25 MILLIGRAM, QD, 25MG/24H
     Route: 048
     Dates: start: 20160404
  4. CHLORTHALIDONE [Interacting]
     Active Substance: CHLORTHALIDONE
     Indication: Cardiac failure
     Dosage: 50 MILLIGRAM, QD
     Route: 048
     Dates: start: 20190312

REACTIONS (2)
  - Hyponatraemia [Recovered/Resolved]
  - Drug interaction [Unknown]

NARRATIVE: CASE EVENT DATE: 20200120
